FAERS Safety Report 8108312-5 (Version None)
Quarter: 2012Q1

REPORT INFORMATION
  Report Type: 
  Country: None (occurrence: None)
  Receive Date: 20120202
  Receipt Date: 20120123
  Transmission Date: 20120608
  Serious: Yes (Other)
  Sender: FDA-Public Use
  Company Number: PHFR2011GB05646

PATIENT
  Age: 15 Year
  Sex: Male

DRUGS (1)
  1. RITALIN [Suspect]

REACTIONS (2)
  - GENITAL DISORDER MALE [None]
  - DELAYED PUBERTY [None]
